FAERS Safety Report 25165287 (Version 1)
Quarter: 2025Q2

REPORT INFORMATION
  Report Type: Spontaneous
  Country: AU (occurrence: AU)
  Receive Date: 20250407
  Receipt Date: 20250407
  Transmission Date: 20250717
  Serious: Yes (Other)
  Sender: NOVO NORDISK
  Company Number: AU-NOVOPROD-1401006

PATIENT
  Age: 75 Year
  Sex: Female

DRUGS (1)
  1. OZEMPIC [Suspect]
     Active Substance: SEMAGLUTIDE
     Indication: Diabetes mellitus

REACTIONS (6)
  - Knee arthroplasty [Unknown]
  - Hip arthroplasty [Unknown]
  - Malabsorption [Unknown]
  - Hypovitaminosis [Unknown]
  - Muscle atrophy [Unknown]
  - Walking aid user [Unknown]
